FAERS Safety Report 12402761 (Version 2)
Quarter: 2016Q2

REPORT INFORMATION
  Report Type: Spontaneous
  Country: US (occurrence: US)
  Receive Date: 20160525
  Receipt Date: 20160527
  Transmission Date: 20160815
  Serious: Yes (Other)
  Sender: FDA-Public Use
  Company Number: US-SA-2016SA073224

PATIENT
  Age: 44 Year
  Sex: Female

DRUGS (5)
  1. SOLOSTAR [Suspect]
     Active Substance: DEVICE
     Indication: TYPE 2 DIABETES MELLITUS
     Dates: start: 201510
  2. LANTUS SOLOSTAR [Suspect]
     Active Substance: INSULIN GLARGINE
     Indication: TYPE 2 DIABETES MELLITUS
     Dosage: DOSE:20 UNIT(S)
     Route: 065
     Dates: start: 201510
  3. HUMIRA [Concomitant]
     Active Substance: ADALIMUMAB
  4. NOVOLOG [Concomitant]
     Active Substance: INSULIN ASPART
  5. PREDNISONE. [Concomitant]
     Active Substance: PREDNISONE
     Route: 042

REACTIONS (5)
  - Confusional state [Unknown]
  - Pyrexia [Unknown]
  - Blood glucose increased [Unknown]
  - Anxiety [Unknown]
  - Frustration tolerance decreased [Unknown]
